FAERS Safety Report 8715815 (Version 2)
Quarter: 2012Q4

REPORT INFORMATION
  Report Type: Spontaneous
  Country: JP (occurrence: None)
  Receive Date: 20120725
  Receipt Date: 20120830
  Transmission Date: 20130627
  Serious: Yes (Other)
  Sender: FDA-Public Use
  Company Number: JP-2012-15850

PATIENT
  Age: 84 Year
  Sex: Male
  Weight: 63 kg

DRUGS (4)
  1. SAMSCA [Suspect]
     Indication: FLUID RETENTION
     Dosage: 15 MG MILLIGRAM(S), QAM, ORAL
     Route: 048
     Dates: start: 20120606
  2. LASIX [Concomitant]
  3. TORSEMIDE [Concomitant]
  4. ALDACTONE [Concomitant]

REACTIONS (2)
  - Thirst [None]
  - Blood sodium increased [None]
